FAERS Safety Report 6126182-1 (Version None)
Quarter: 2009Q1

REPORT INFORMATION
  Report Type: 
  Country: None (occurrence: None)
  Receive Date: 20090320
  Receipt Date: 20090312
  Transmission Date: 20090719
  Serious: Yes (Hospitalization)
  Sender: FDA-Public Use
  Company Number: B0561242A

PATIENT
  Age: 29 Year
  Sex: Female
  Weight: 79 kg

DRUGS (3)
  1. ARIXTRA [Suspect]
     Dosage: 2.5MG PER DAY
     Route: 058
     Dates: start: 20090202, end: 20090213
  2. CELECTOL [Concomitant]
     Route: 065
  3. LASIX [Concomitant]
     Route: 065

REACTIONS (4)
  - HAEMATOMA [None]
  - HAEMATURIA [None]
  - METRORRHAGIA [None]
  - OFF LABEL USE [None]
